FAERS Safety Report 10275032 (Version 1)
Quarter: 2014Q3

REPORT INFORMATION
  Report Type: Spontaneous
  Country: US (occurrence: US)
  Receive Date: 20140703
  Receipt Date: 20140703
  Transmission Date: 20150326
  Serious: No
  Sender: FDA-Public Use
  Company Number: US-B.I. PHARMACEUTICALS,INC./RIDGEFIELD-2014-BI-28913BP

PATIENT
  Sex: Female

DRUGS (13)
  1. ATIVAN [Concomitant]
     Active Substance: LORAZEPAM
     Route: 065
  2. FISH OIL [Concomitant]
     Active Substance: FISH OIL
     Route: 065
  3. EFFIENT [Concomitant]
     Active Substance: PRASUGREL HYDROCHLORIDE
     Route: 065
  4. PRILOSEC [Concomitant]
     Active Substance: OMEPRAZOLE MAGNESIUM
     Route: 065
  5. LIVALO [Concomitant]
     Active Substance: PITAVASTATIN CALCIUM
     Route: 065
  6. COREG [Concomitant]
     Active Substance: CARVEDILOL
     Route: 065
  7. MICARDIS [Suspect]
     Active Substance: TELMISARTAN
     Indication: PRODUCT USED FOR UNKNOWN INDICATION
     Dosage: 40 MG
     Route: 048
  8. VITAMIN D2 [Concomitant]
     Active Substance: ERGOCALCIFEROL
     Route: 065
  9. PROCARDIA XL [Concomitant]
     Active Substance: NIFEDIPINE
     Route: 065
  10. DOXAZOSIN [Concomitant]
     Active Substance: DOXAZOSIN\DOXAZOSIN MESYLATE
     Route: 065
  11. VICODIN ES [Concomitant]
     Active Substance: ACETAMINOPHEN\HYDROCODONE BITARTRATE
     Route: 065
  12. ASPIRIN. [Concomitant]
     Active Substance: ASPIRIN
     Route: 065
  13. INDOMETHACIN. [Concomitant]
     Active Substance: INDOMETHACIN
     Route: 065

REACTIONS (1)
  - Laryngitis [Not Recovered/Not Resolved]
